FAERS Safety Report 6969405-9 (Version None)
Quarter: 2010Q3

REPORT INFORMATION
  Report Type: 
  Country: None (occurrence: None)
  Receive Date: 20100902
  Receipt Date: 20100825
  Transmission Date: 20110219
  Serious: Yes (Hospitalization)
  Sender: FDA-Public Use
  Company Number: 010995

PATIENT
  Sex: Female
  Weight: 57.1 kg

DRUGS (9)
  1. CERTOLIZUMAB PEGOL (CERTOLIZUMAB PEGOL) [Suspect]
     Indication: RHEUMATOID ARTHRITIS
     Dosage: (200 MG 1X/2 WEEKS SUBCUTANEOUS)
     Route: 058
     Dates: start: 20090820, end: 20100415
  2. CERTOLIZUMAB PEGOL (CERTOLIZUMAB PEGOL) [Suspect]
     Indication: RHEUMATOID ARTHRITIS
     Dosage: (200 MG 1X/2 WEEKS SUBCUTANEOUS)
     Route: 058
     Dates: start: 20100526
  3. DICLOFENAC SODIUM [Concomitant]
  4. ROXATIDINE ACETATE HCL [Concomitant]
  5. TRIAZOLAM [Concomitant]
  6. ISONIAZID [Concomitant]
  7. PYRIDOXAL PHOSPHATE [Concomitant]
  8. PREDNISOLONE [Concomitant]
  9. VOLTAREN [Concomitant]

REACTIONS (5)
  - ACTIVATED PARTIAL THROMBOPLASTIN TIME PROLONGED [None]
  - CEREBROVASCULAR SPASM [None]
  - HYDROCEPHALUS [None]
  - RUPTURED CEREBRAL ANEURYSM [None]
  - SUBARACHNOID HAEMORRHAGE [None]
